FAERS Safety Report 5752298-5 (Version None)
Quarter: 2008Q2

REPORT INFORMATION
  Report Type: 
  Country: None (occurrence: None)
  Receive Date: 20080527
  Receipt Date: 20080415
  Transmission Date: 20081010
  Serious: Yes (Death, Life-Threatening, Hospitalization, Other)
  Sender: FDA-Public Use
  Company Number: CLOF-1000007

PATIENT
  Age: 12 Year
  Sex: Male
  Weight: 36.4 kg

DRUGS (9)
  1. CLOLAR [Suspect]
     Indication: ACUTE LYMPHOCYTIC LEUKAEMIA
     Dosage: 36 MG,  INTRAVENOUS
     Route: 042
     Dates: start: 20071206, end: 20071215
  2. CLOLAR [Suspect]
  3. CYCLOPHOSPHAMIDE [Suspect]
     Indication: ACUTE LYMPHOCYTIC LEUKAEMIA
     Dosage: 240 MG,  INTRAVENOUS; 480 MG, INTRAVENOUS
     Route: 042
     Dates: start: 20071205, end: 20071206
  4. CYCLOPHOSPHAMIDE [Suspect]
     Indication: ACUTE LYMPHOCYTIC LEUKAEMIA
     Dosage: 240 MG,  INTRAVENOUS; 480 MG, INTRAVENOUS
     Route: 042
     Dates: start: 20071207, end: 20071208
  5. CYCLOPHOSPHAMIDE [Suspect]
     Indication: ACUTE LYMPHOCYTIC LEUKAEMIA
     Dosage: 240 MG,  INTRAVENOUS; 480 MG, INTRAVENOUS
     Route: 042
     Dates: start: 20071213, end: 20071215
  6. NALOXONE [Concomitant]
  7. HYDROCORTISONE (SALICYLIC ACID) [Concomitant]
  8. VANCOMYCIN HYDROCHLORIDE [Concomitant]
  9. HYDROMORPHONE HCL [Concomitant]

REACTIONS (44)
  - BLOOD CREATININE INCREASED [None]
  - CARDIOMYOPATHY [None]
  - CARDIOVASCULAR DISORDER [None]
  - CHEST PAIN [None]
  - COAGULOPATHY [None]
  - DIALYSIS [None]
  - DRUG TOXICITY [None]
  - FAT NECROSIS [None]
  - FEBRILE NEUTROPENIA [None]
  - FIBROSIS [None]
  - FUNGAL INFECTION [None]
  - GASTROINTESTINAL NECROSIS [None]
  - HEPATIC HAEMORRHAGE [None]
  - HYPERBILIRUBINAEMIA [None]
  - HYPOTENSION [None]
  - HYPOXIA [None]
  - INFECTION [None]
  - LARGE INTESTINAL HAEMORRHAGE [None]
  - MENTAL STATUS CHANGES [None]
  - MICROANGIOPATHIC HAEMOLYTIC ANAEMIA [None]
  - MUSCULOSKELETAL PAIN [None]
  - MYOSITIS [None]
  - PAIN IN EXTREMITY [None]
  - PANCREATIC NECROSIS [None]
  - PERICARDIAL EFFUSION [None]
  - PLEURAL EFFUSION [None]
  - PNEUMONIA FUNGAL [None]
  - PROCTALGIA [None]
  - PULMONARY VALVE INCOMPETENCE [None]
  - PYREXIA [None]
  - RENAL FAILURE [None]
  - RESPIRATORY RATE [None]
  - RESPIRATORY RATE INCREASED [None]
  - SINUS TACHYCARDIA [None]
  - SMALL INTESTINAL HAEMORRHAGE [None]
  - SPLEEN DISORDER [None]
  - TACHYCARDIA [None]
  - THROMBOTIC THROMBOCYTOPENIC PURPURA [None]
  - THYROID DISORDER [None]
  - TRANSAMINASES INCREASED [None]
  - TRICUSPID VALVE DISEASE [None]
  - URINARY BLADDER HAEMORRHAGE [None]
  - VENOOCCLUSIVE DISEASE [None]
  - WHITE BLOOD CELL DISORDER [None]
